FAERS Safety Report 8422937-9 (Version None)
Quarter: 2012Q2

REPORT INFORMATION
  Report Type: 
  Country: None (occurrence: None)
  Receive Date: 20120608
  Receipt Date: 20120529
  Transmission Date: 20120825
  Serious: Yes (Hospitalization, Disabling)
  Sender: FDA-Public Use
  Company Number: JP-GLAXOSMITHKLINE-B0798838A

PATIENT
  Sex: Female
  Weight: 61 kg

DRUGS (7)
  1. ARIXTRA [Suspect]
     Indication: EMBOLISM VENOUS
     Dosage: 2.5MG PER DAY
     Route: 058
     Dates: start: 20120407, end: 20120411
  2. LIPIDIL [Concomitant]
     Dosage: 200MG PER DAY
     Route: 048
  3. SOLON [Concomitant]
     Dosage: 150MG PER DAY
     Route: 048
  4. AMLODIPINE [Concomitant]
     Dosage: 5MG PER DAY
     Route: 048
  5. URALYT [Concomitant]
     Route: 048
  6. LOBU [Concomitant]
     Route: 048
  7. URINORM [Concomitant]
     Dosage: 150MG PER DAY
     Route: 048

REACTIONS (6)
  - HAEMOGLOBIN DECREASED [None]
  - INCISION SITE HAEMATOMA [None]
  - HAEMATOCRIT DECREASED [None]
  - SCIATIC NERVE PALSY [None]
  - PROTEIN TOTAL DECREASED [None]
  - RED BLOOD CELL COUNT DECREASED [None]
